FAERS Safety Report 24349614 (Version 2)
Quarter: 2025Q2

REPORT INFORMATION
  Report Type: Report from Study
  Country: KR (occurrence: KR)
  Receive Date: 20240923
  Receipt Date: 20250621
  Transmission Date: 20250717
  Serious: Yes (Other)
  Sender: JAZZ
  Company Number: KR-BR-LTD-OS-401-029-002

PATIENT
  Age: 67 Year
  Sex: Female
  Weight: 40 kg

DRUGS (39)
  1. LURBINECTEDIN [Suspect]
     Active Substance: LURBINECTEDIN
     Indication: Product used for unknown indication
     Dosage: 1.9 MILLIGRAM/SQ. METER, Q3W (CYCLE 1 DAY 1)
     Route: 042
     Dates: start: 20230731
  2. LURBINECTEDIN [Suspect]
     Active Substance: LURBINECTEDIN
     Route: 042
     Dates: start: 20240823
  3. LURBINECTEDIN [Suspect]
     Active Substance: LURBINECTEDIN
     Dosage: 1.4 MILLIGRAM/SQ. METER, Q3W (CYCLE 1 DAY 1)
     Route: 042
     Dates: start: 20230920
  4. LURBINECTEDIN [Suspect]
     Active Substance: LURBINECTEDIN
     Dosage: 1.7 MILLIGRAM/SQ. METER, Q3W (CYCLE 1 DAY 1)
     Route: 042
     Dates: start: 20231016, end: 20240125
  5. JANUVIA [Concomitant]
     Active Substance: SITAGLIPTIN PHOSPHATE
     Indication: Diabetes mellitus
     Dosage: 25 MILLIGRAM, QD
     Route: 048
     Dates: start: 200901
  6. CRESTOR [Concomitant]
     Active Substance: ROSUVASTATIN CALCIUM
     Indication: Hyperlipidaemia
     Dosage: 10 MILLIGRAM, QD
     Route: 048
     Dates: start: 20190312
  7. ULTRACET ER SEMI [Concomitant]
     Indication: Small cell lung cancer
     Dosage: 37.5 MILLIGRAM, TID
     Route: 048
     Dates: start: 20220321
  8. BISOPROLOL FUMARATE [Concomitant]
     Active Substance: BISOPROLOL FUMARATE
     Indication: Prophylaxis
     Dosage: 1.25 MILLIGRAM, QD
     Route: 048
     Dates: start: 20190317
  9. PREGREL [Concomitant]
     Indication: Prophylaxis
     Dosage: 75 MILLIGRAM, QD
     Route: 048
     Dates: start: 20221006
  10. LYRICA [Concomitant]
     Active Substance: PREGABALIN
     Indication: Prophylaxis
     Dosage: 75 MILLIGRAM, QD
     Route: 048
     Dates: start: 20220616
  11. DEXAMETHASONE [Concomitant]
     Active Substance: DEXAMETHASONE
     Indication: Prophylaxis
     Dosage: 5 MILLIGRAM, QD
     Route: 042
     Dates: start: 20230731, end: 20230731
  12. DONGA ACETAMINOPHEN [Concomitant]
     Indication: Prophylaxis
     Dosage: 20 MILLIGRAM, QD
     Route: 042
     Dates: start: 20230731
  13. GLUCOPHAGE [Concomitant]
     Active Substance: METFORMIN HYDROCHLORIDE
     Indication: Diabetes mellitus
     Route: 048
     Dates: start: 20230731
  14. KANITRON [Concomitant]
     Indication: Prophylaxis
     Dosage: 3 MILLIGRAM, QD
     Route: 042
     Dates: start: 20230731, end: 20230731
  15. PENIRAMIN [Concomitant]
     Indication: Prophylaxis
     Dosage: 2 MILLIGRAM, QD
     Route: 042
     Dates: start: 20230731, end: 20230731
  16. PENIRAMIN [Concomitant]
     Dosage: 2 MILLILITER, QD
     Route: 042
     Dates: start: 20230823, end: 20230823
  17. PENIRAMIN [Concomitant]
     Dosage: 2 MILLILITER, QD
     Route: 042
     Dates: start: 20230920, end: 20230920
  18. PENIRAMIN [Concomitant]
     Dosage: 2 MILLILITER, QD
     Route: 042
     Dates: start: 20231016, end: 20231016
  19. PENIRAMIN [Concomitant]
     Dosage: 2 MILLILITER, QD
     Route: 042
     Dates: start: 20231113, end: 20231113
  20. PENIRAMIN [Concomitant]
     Dosage: 2 MILLILITER, QD
     Route: 042
     Dates: start: 20231204, end: 20231204
  21. PENIRAMIN [Concomitant]
     Route: 042
     Dates: start: 20231213
  22. TAMIPOOL [VITAMINS NOS] [Concomitant]
     Indication: Prophylaxis
     Route: 042
     Dates: start: 20230731, end: 20230920
  23. VAITASOL [Concomitant]
     Indication: Prophylaxis
     Route: 042
     Dates: start: 20230731
  24. CEFUROXIME [Concomitant]
     Active Substance: CEFUROXIME
     Dosage: 250 MILLIGRAM, BID
     Route: 048
     Dates: start: 20230810, end: 20230906
  25. DEXTROMETHORPHAN [Concomitant]
     Active Substance: DEXTROMETHORPHAN
     Dosage: 20 MILLILITER, TID
     Route: 048
     Dates: start: 20230920, end: 20231018
  26. HYDROCORTISONE [Concomitant]
     Active Substance: HYDROCORTISONE
     Route: 042
  27. FAMOTIDINE [Concomitant]
     Active Substance: FAMOTIDINE
     Dosage: 10 MILLILITER, QD
     Route: 042
     Dates: start: 20230823
  28. CHLORPHENIRAMINE MALEATE [Concomitant]
     Active Substance: CHLORPHENIRAMINE MALEATE
     Dosage: 2 MILLILITER, QD
     Route: 042
     Dates: start: 20230823
  29. GRANISETRON [Concomitant]
     Active Substance: GRANISETRON
     Dosage: 3 MILLILITER, QD
     Route: 042
     Dates: start: 20230823
  30. FILGRASTIM [Concomitant]
     Active Substance: FILGRASTIM
     Dosage: 3.6 MILLILITER, QD
     Route: 058
     Dates: start: 20230823
  31. FILGRASTIM [Concomitant]
     Active Substance: FILGRASTIM
     Dosage: 2.4 MILLILITER, QD
     Route: 058
     Dates: start: 20230920
  32. FILGRASTIM [Concomitant]
     Active Substance: FILGRASTIM
     Dosage: 1.2 MILLILITER, QD
     Route: 058
     Dates: start: 20231016
  33. FILGRASTIM [Concomitant]
     Active Substance: FILGRASTIM
     Dosage: 2.4 MILLILITER, QD
     Dates: start: 20231113
  34. TRISONE KIT [Concomitant]
     Dosage: 2 GRAM, QD
     Route: 042
     Dates: start: 20230810
  35. TRANSAMIN [Concomitant]
     Active Substance: TRANEXAMIC ACID
     Dosage: 250 MILLIGRAM, BID
     Dates: start: 20230810, end: 20230816
  36. ACETAMINOPHEN\TRAMADOL [Concomitant]
     Active Substance: ACETAMINOPHEN\TRAMADOL
     Indication: Small cell lung cancer
  37. SAMSUNG DEXFEN [Concomitant]
     Dosage: 400 MILLIGRAM, QD
     Route: 042
     Dates: start: 20240810
  38. JEIL CRAVIT [Concomitant]
     Dosage: 100 MILLIGRAM, BID
     Route: 048
     Dates: start: 20230810, end: 20230816
  39. CIPROFLOXACIN [Concomitant]
     Active Substance: CIPROFLOXACIN
     Dosage: 200 MILLIGRAM, QD
     Route: 042
     Dates: start: 20230810

REACTIONS (5)
  - Febrile neutropenia [Recovered/Resolved]
  - Pancytopenia [Recovered/Resolved]
  - Lethargy [Recovered/Resolved]
  - Cough [Not Recovered/Not Resolved]
  - Neutrophil count decreased [Recovered/Resolved]

NARRATIVE: CASE EVENT DATE: 20230810
